FAERS Safety Report 12413543 (Version 8)
Quarter: 2020Q3

REPORT INFORMATION
  Report Type: Report from Study
  Country: FR (occurrence: FR)
  Receive Date: 20160527
  Receipt Date: 20171117
  Transmission Date: 20201104
  Serious: Yes (Death, Life-Threatening, Hospitalization)
  Sender: FDA-Public Use
  Company Number: FR-JNJFOC-20160521693

PATIENT
  Age: 75 Year
  Sex: Male
  Weight: 89 kg

DRUGS (33)
  1. KARDEGIC [Concomitant]
     Active Substance: ASPIRIN DL-LYSINE
     Indication: PROPHYLAXIS
     Dates: start: 20150917, end: 20160410
  2. MONOPROST [Concomitant]
     Active Substance: LATANOPROST
     Indication: OPEN ANGLE GLAUCOMA
     Dates: start: 20141110
  3. AXEPIM [Concomitant]
     Active Substance: CEFEPIME HYDROCHLORIDE
     Indication: SEPSIS
     Route: 042
     Dates: start: 20160410, end: 20160418
  4. ROVAMYCIN [Concomitant]
     Active Substance: SPIRAMYCIN
     Indication: PNEUMONIA
     Dates: start: 20160420, end: 20160423
  5. TEVAGRASTIM [Concomitant]
     Active Substance: FILGRASTIM
     Indication: PNEUMONIA
     Dosage: ONCE
     Route: 042
     Dates: start: 20160414, end: 20160414
  6. BACTRIM [Concomitant]
     Active Substance: SULFAMETHOXAZOLE\TRIMETHOPRIM
     Indication: INFECTION PROPHYLAXIS
     Route: 048
     Dates: start: 201111
  7. LEDERFOLINE [Concomitant]
     Active Substance: LEUCOVORIN CALCIUM
     Indication: PROPHYLAXIS
     Route: 048
     Dates: start: 201111
  8. NEUPOGEN [Concomitant]
     Active Substance: FILGRASTIM
     Indication: PROPHYLAXIS
     Dosage: 48 (UNIT OTHER)
     Route: 042
     Dates: start: 20151014
  9. ROVAMYCIN [Concomitant]
     Active Substance: SPIRAMYCIN
     Indication: SEPSIS
     Dates: start: 20160420, end: 20160423
  10. COUMADINE [Concomitant]
     Active Substance: WARFARIN SODIUM
     Indication: PNEUMONIA
     Route: 048
     Dates: start: 20160410, end: 20160410
  11. DARATUMUMAB [Suspect]
     Active Substance: DARATUMUMAB
     Route: 042
  12. COUMADINE [Concomitant]
     Active Substance: WARFARIN SODIUM
     Indication: SEPSIS
     Route: 048
     Dates: start: 20160410, end: 20160410
  13. AMIODARONE [Concomitant]
     Active Substance: AMIODARONE
     Indication: SUPRAVENTRICULAR EXTRASYSTOLES
     Route: 048
     Dates: start: 20131127
  14. ORACILLINE [Concomitant]
     Active Substance: PENICILLIN V
     Indication: INFECTION PROPHYLAXIS
     Route: 048
     Dates: start: 201111
  15. BACTRIM [Concomitant]
     Active Substance: SULFAMETHOXAZOLE\TRIMETHOPRIM
     Indication: SEPSIS
     Route: 048
     Dates: start: 201111
  16. DARATUMUMAB [Suspect]
     Active Substance: DARATUMUMAB
     Indication: PLASMA CELL MYELOMA
     Dosage: 1424 MG
     Route: 042
     Dates: start: 20150917, end: 20160330
  17. DEXAMETHASONE. [Concomitant]
     Active Substance: DEXAMETHASONE
     Indication: PLASMA CELL MYELOMA
     Dosage: MOST RECENT DOSE APR?2016
     Route: 048
     Dates: start: 20150917, end: 20160330
  18. ZOLPIDEM [Concomitant]
     Active Substance: ZOLPIDEM TARTRATE
     Indication: INSOMNIA
     Route: 048
     Dates: start: 2015
  19. BACTRIM [Concomitant]
     Active Substance: SULFAMETHOXAZOLE\TRIMETHOPRIM
     Indication: SEPSIS
     Route: 048
     Dates: start: 20160420
  20. LYRICA [Concomitant]
     Active Substance: PREGABALIN
     Indication: NEUROPATHY PERIPHERAL
     Route: 048
     Dates: start: 20141226
  21. CIPROFLOXACIN. [Concomitant]
     Active Substance: CIPROFLOXACIN
     Indication: SEPSIS
     Route: 048
     Dates: start: 20160410, end: 20160412
  22. TEVAGRASTIM [Concomitant]
     Active Substance: FILGRASTIM
     Indication: SEPSIS
     Dosage: ONCE
     Route: 042
     Dates: start: 20160414, end: 20160414
  23. ZELITREX [Concomitant]
     Active Substance: VALACYCLOVIR HYDROCHLORIDE
     Indication: INFECTION PROPHYLAXIS
     Route: 048
     Dates: start: 201111
  24. POMALIDOMIDE [Concomitant]
     Active Substance: POMALIDOMIDE
     Indication: PLASMA CELL MYELOMA
     Dosage: MOST RECENT DOSE APR?2016; FREQUENCY: 21 DAYS/ 28 DAYS
     Route: 048
     Dates: start: 20150917, end: 20160330
  25. BACTRIM [Concomitant]
     Active Substance: SULFAMETHOXAZOLE\TRIMETHOPRIM
     Indication: PNEUMONIA
     Route: 048
     Dates: start: 201111
  26. BACTRIM [Concomitant]
     Active Substance: SULFAMETHOXAZOLE\TRIMETHOPRIM
     Indication: INFECTION PROPHYLAXIS
     Route: 048
     Dates: start: 20160420
  27. IXPRIM [Concomitant]
     Active Substance: ACETAMINOPHEN\TRAMADOL HYDROCHLORIDE
     Indication: PAIN PROPHYLAXIS
     Dosage: 48 (UNIT OTHER)
     Route: 048
     Dates: start: 20151028
  28. AUGMENTIN [Concomitant]
     Active Substance: AMOXICILLIN\CLAVULANATE POTASSIUM
     Indication: SEPSIS
     Route: 042
     Dates: start: 20160410, end: 20160412
  29. TAMIFLU [Concomitant]
     Active Substance: OSELTAMIVIR PHOSPHATE
     Indication: SEPSIS
     Dates: start: 20160410, end: 20160415
  30. BACTRIM [Concomitant]
     Active Substance: SULFAMETHOXAZOLE\TRIMETHOPRIM
     Indication: PNEUMONIA
     Route: 048
     Dates: start: 20160420
  31. TAZOCILLINE [Concomitant]
     Active Substance: PIPERACILLIN SODIUM\TAZOBACTAM SODIUM
     Indication: SEPSIS
     Dates: start: 20160419, end: 20160423
  32. CIPROFLOXACIN. [Concomitant]
     Active Substance: CIPROFLOXACIN
     Indication: PNEUMONIA
     Route: 048
     Dates: start: 20160410, end: 20160412
  33. TAMIFLU [Concomitant]
     Active Substance: OSELTAMIVIR PHOSPHATE
     Indication: PNEUMONIA
     Dates: start: 20160410, end: 20160415

REACTIONS (1)
  - Bronchopulmonary aspergillosis [Fatal]

NARRATIVE: CASE EVENT DATE: 20160420
